FAERS Safety Report 4479683-6 (Version None)
Quarter: 2004Q4

REPORT INFORMATION
  Report Type: 
  Country: None (occurrence: None)
  Receive Date: 20041020
  Receipt Date: 20041012
  Transmission Date: 20050328
  Serious: Yes (Other)
  Sender: FDA-Public Use
  Company Number: NL-GLAXOSMITHKLINE-B0348020A

PATIENT
  Age: 40 Year
  Sex: Female

DRUGS (1)
  1. AMOXICILLIN + CLAVULANIC ACID [Suspect]
     Indication: ACUTE SINUSITIS
     Dosage: 1TAB THREE TIMES PER DAY
     Route: 048
     Dates: start: 20040924, end: 20040930

REACTIONS (2)
  - NEURALGIA [None]
  - NEUROPATHY [None]
